FAERS Safety Report 16080933 (Version 4)
Quarter: 2020Q1

REPORT INFORMATION
  Report Type: Report from Study
  Country: US (occurrence: US)
  Receive Date: 20190316
  Receipt Date: 20200312
  Transmission Date: 20200409
  Serious: No
  Sender: FDA-Public Use
  Company Number: PHEH2019US011767

PATIENT
  Sex: Female

DRUGS (1)
  1. GILENYA [Suspect]
     Active Substance: FINGOLIMOD HYDROCHLORIDE
     Indication: MULTIPLE SCLEROSIS
     Dosage: 0.5 MG, QD
     Route: 065
     Dates: start: 20190101

REACTIONS (11)
  - Fatigue [Unknown]
  - Joint stiffness [Unknown]
  - Memory impairment [Unknown]
  - Red blood cell abnormality [Unknown]
  - Liver function test abnormal [Unknown]
  - Back pain [Unknown]
  - Asthenia [Unknown]
  - White blood cell count decreased [Unknown]
  - Sinusitis [Unknown]
  - Headache [Unknown]
  - Vision blurred [Recovering/Resolving]
